FAERS Safety Report 15373299 (Version 1)
Quarter: 2018Q3

REPORT INFORMATION
  Report Type: Spontaneous
  Country: US (occurrence: US)
  Receive Date: 20180912
  Receipt Date: 20180912
  Transmission Date: 20181010
  Serious: No
  Sender: FDA-Public Use
  Company Number: US-ASTRAZENECA-2005UW02576

PATIENT
  Age: 508 Month
  Sex: Female
  Weight: 99.8 kg

DRUGS (16)
  1. PAXIL [Concomitant]
     Active Substance: PAROXETINE HYDROCHLORIDE
  2. SOMA [Concomitant]
     Active Substance: CARISOPRODOL
  3. ZOLOFT [Concomitant]
     Active Substance: SERTRALINE HYDROCHLORIDE
  4. CRESTOR [Suspect]
     Active Substance: ROSUVASTATIN CALCIUM
     Indication: HYPERTRIGLYCERIDAEMIA
     Dosage: UNKNOWN DOSE, DAILY
     Route: 048
     Dates: start: 2013, end: 2014
  5. CRESTOR [Suspect]
     Active Substance: ROSUVASTATIN CALCIUM
     Indication: HYPERTRIGLYCERIDAEMIA
     Route: 048
     Dates: start: 200411
  6. NEURONTIN [Concomitant]
     Active Substance: GABAPENTIN
  7. AMBIEN CR [Concomitant]
     Active Substance: ZOLPIDEM TARTRATE
  8. CARDIZEM [Concomitant]
     Active Substance: DILTIAZEM HYDROCHLORIDE
  9. ROBAXIN [Concomitant]
     Active Substance: METHOCARBAMOL
  10. LASIX [Concomitant]
     Active Substance: FUROSEMIDE
  11. COUMADIN [Concomitant]
     Active Substance: WARFARIN SODIUM
  12. CRESTOR [Suspect]
     Active Substance: ROSUVASTATIN CALCIUM
     Indication: BLOOD CHOLESTEROL INCREASED
     Route: 048
     Dates: start: 200411
  13. CRESTOR [Suspect]
     Active Substance: ROSUVASTATIN CALCIUM
     Indication: BLOOD CHOLESTEROL INCREASED
     Dosage: UNKNOWN DOSE, DAILY
     Route: 048
     Dates: start: 2013, end: 2014
  14. K+ [Concomitant]
     Active Substance: POTASSIUM
  15. LORTAB [Concomitant]
     Active Substance: ACETAMINOPHEN\HYDROCODONE BITARTRATE
  16. XANAX [Concomitant]
     Active Substance: ALPRAZOLAM

REACTIONS (5)
  - Alopecia [Unknown]
  - Insomnia [Recovered/Resolved]
  - Myopathy [Not Recovered/Not Resolved]
  - Blood creatine phosphokinase increased [Recovering/Resolving]
  - Blood triglycerides increased [Recovered/Resolved]

NARRATIVE: CASE EVENT DATE: 200412
